FAERS Safety Report 7949910-9 (Version None)
Quarter: 2011Q4

REPORT INFORMATION
  Report Type: 
  Country: None (occurrence: None)
  Receive Date: 20111130
  Receipt Date: 20111128
  Transmission Date: 20120403
  Serious: Yes (Other)
  Sender: FDA-Public Use
  Company Number: DE-BAYER-2011-098780

PATIENT
  Age: 66 Year
  Sex: Male

DRUGS (4)
  1. DIOVAN HCT [Concomitant]
     Indication: HYPERTENSION
     Route: 048
  2. AMLODIPINE [Concomitant]
     Indication: HYPERTENSION
     Route: 048
  3. LEVITRA [Suspect]
     Indication: ERECTILE DYSFUNCTION
     Dosage: 1 DF, OW
     Route: 048
     Dates: start: 20111010
  4. METOPROLOL SUCCINATE [Concomitant]
     Indication: HYPERTENSION
     Route: 048

REACTIONS (7)
  - VISUAL IMPAIRMENT [None]
  - EPISTAXIS [None]
  - HEADACHE [None]
  - PHOTOPSIA [None]
  - DRY EYE [None]
  - VITREOUS DETACHMENT [None]
  - NASAL CONGESTION [None]
